FAERS Safety Report 9518772 (Version 1)
Quarter: 2013Q3

REPORT INFORMATION
  Report Type: Spontaneous
  Country: US (occurrence: US)
  Receive Date: 20130912
  Receipt Date: 20130912
  Transmission Date: 20140515
  Serious: No
  Sender: FDA-Public Use
  Company Number: US-MUTUAL PHARMACEUTICAL COMPANY, INC.-CLND20130001

PATIENT
  Age: 53 Year
  Sex: Female

DRUGS (1)
  1. CLONIDINE HYDROCHLORIDE TABLETS 0.1 MG [Suspect]
     Indication: HYPERTENSION
     Route: 048
     Dates: start: 201302, end: 201302

REACTIONS (5)
  - Wheezing [Recovered/Resolved]
  - Swelling face [Recovered/Resolved]
  - Local swelling [Recovered/Resolved]
  - Rash [Recovered/Resolved]
  - Drug hypersensitivity [Recovered/Resolved]
